FAERS Safety Report 5919008-X (Version None)
Quarter: 2008Q4

REPORT INFORMATION
  Report Type: 
  Country: None (occurrence: None)
  Receive Date: 20081015
  Receipt Date: 20081005
  Transmission Date: 20090506
  Serious: Yes (Death, Life-Threatening, Other)
  Sender: FDA-Public Use
  Company Number: SE-JNJFOC-20080906591

PATIENT
  Age: 34 Year
  Sex: Male

DRUGS (6)
  1. REMICADE [Suspect]
     Route: 042
  2. REMICADE [Suspect]
     Indication: PSORIATIC ARTHROPATHY
     Route: 042
  3. METHOTREXATE SODIUM [Concomitant]
  4. ATENOLOL [Concomitant]
  5. DICLOFENAC [Concomitant]
  6. ALVEDON [Concomitant]

REACTIONS (2)
  - ACUTE MYOCARDIAL INFARCTION [None]
  - VENTRICULAR FIBRILLATION [None]
